FAERS Safety Report 9400121 (Version 2)
Quarter: 2013Q3

REPORT INFORMATION
  Report Type: Spontaneous
  Country: US (occurrence: US)
  Receive Date: 20130715
  Receipt Date: 20130722
  Transmission Date: 20140515
  Serious: Yes (Other)
  Sender: FDA-Public Use
  Company Number: US-ROCHE-1247350

PATIENT
  Age: 88 Year
  Sex: Male

DRUGS (1)
  1. ERIVEDGE [Suspect]
     Indication: BASAL CELL CARCINOMA
     Route: 048
     Dates: start: 20120403, end: 20121022

REACTIONS (3)
  - B-cell lymphoma [Unknown]
  - Dysgeusia [Recovered/Resolved]
  - Fatigue [Recovering/Resolving]
